FAERS Safety Report 4354297-7 (Version None)
Quarter: 2004Q2

REPORT INFORMATION
  Report Type: 
  Country: None (occurrence: None)
  Receive Date: 20040503
  Receipt Date: 20030707
  Transmission Date: 20050107
  Serious: Yes (Life-Threatening, Hospitalization)
  Sender: FDA-Public Use
  Company Number: PHEH2003US05844

PATIENT
  Age: 45 Year
  Sex: Female

DRUGS (1)
  1. DIOVAN HCT [Suspect]
     Indication: HYPERTENSION
     Dosage: 80MG VAL + 12.5 MG HCT QD, ORAL
     Route: 048
     Dates: start: 20030625, end: 20030625

REACTIONS (2)
  - ANAPHYLACTIC REACTION [None]
  - BLOOD PRESSURE DECREASED [None]
